FAERS Safety Report 9374094 (Version 3)
Quarter: 2013Q3

REPORT INFORMATION
  Report Type: Spontaneous
  Country: US (occurrence: US)
  Receive Date: 20130628
  Receipt Date: 20130827
  Transmission Date: 20140515
  Serious: Yes (Hospitalization)
  Sender: FDA-Public Use
  Company Number: US-BIOGENIDEC-2013BI056589

PATIENT
  Age: 58 Year
  Sex: Female

DRUGS (1)
  1. AVONEX [Suspect]
     Indication: MULTIPLE SCLEROSIS
     Route: 030
     Dates: start: 20110531

REACTIONS (4)
  - Fall [Recovered/Resolved]
  - Back pain [Not Recovered/Not Resolved]
  - Ligament rupture [Recovered/Resolved]
  - Neck pain [Not Recovered/Not Resolved]
